FAERS Safety Report 6876254-9 (Version None)
Quarter: 2010Q3

REPORT INFORMATION
  Report Type: 
  Country: None (occurrence: None)
  Receive Date: 20100727
  Receipt Date: 20100720
  Transmission Date: 20110219
  Serious: Yes (Hospitalization)
  Sender: FDA-Public Use
  Company Number: A0872321A

PATIENT
  Sex: Female

DRUGS (4)
  1. ADVAIR DISKUS 100/50 [Suspect]
     Indication: ASTHMA
     Route: 055
     Dates: start: 19950101
  2. VENTOLIN HFA [Suspect]
     Indication: ASTHMA
     Route: 055
  3. ANESTHESIA [Suspect]
  4. PERFUME [Suspect]

REACTIONS (3)
  - ASTHMA [None]
  - GASTRIC DISORDER [None]
  - HERNIA REPAIR [None]
